FAERS Safety Report 4855914-5 (Version None)
Quarter: 2005Q4

REPORT INFORMATION
  Report Type: 
  Country: None (occurrence: None)
  Receive Date: 20051216
  Receipt Date: 20051013
  Transmission Date: 20060501
  Serious: Yes (Hospitalization)
  Sender: FDA-Public Use
  Company Number: JP-JPN-A20052453

PATIENT
  Sex: Male
  Weight: 2.5 kg

DRUGS (5)
  1. PAXIL [Suspect]
  2. MEILAX [Suspect]
  3. BENZALIN [Suspect]
  4. HIRNAMIN [Suspect]
  5. SILECE [Suspect]

REACTIONS (4)
  - DRUG EXPOSURE DURING PREGNANCY [None]
  - DRUG WITHDRAWAL SYNDROME NEONATAL [None]
  - HYPOTONIA NEONATAL [None]
  - NEONATAL DISORDER [None]
